FAERS Safety Report 6440197-5 (Version None)
Quarter: 2009Q4

REPORT INFORMATION
  Report Type: 
  Country: None (occurrence: None)
  Receive Date: 20091113
  Receipt Date: 20090820
  Transmission Date: 20100525
  Serious: No
  Sender: FDA-Public Use
  Company Number: A0803313A

PATIENT
  Age: 60 Year
  Sex: Female

DRUGS (4)
  1. COREG [Suspect]
     Dosage: 6.25MG TWICE PER DAY
     Route: 048
     Dates: start: 20090701
  2. PREDNISONE [Concomitant]
  3. LASIX [Concomitant]
  4. HEART MEDICATION [Concomitant]

REACTIONS (2)
  - ASTHENIA [None]
  - DIZZINESS [None]
